FAERS Safety Report 13753185 (Version 1)
Quarter: 2017Q3

REPORT INFORMATION
  Report Type: Spontaneous
  Country: US (occurrence: US)
  Receive Date: 20170712
  Receipt Date: 20170712
  Transmission Date: 20171127
  Serious: Yes (Disabling, Other)
  Sender: FDA-Public Use
  Company Number: None

PATIENT
  Age: 61 Year
  Sex: Male
  Weight: 83.25 kg

DRUGS (5)
  1. HGH HUMAN GROWTH HORMONE [Suspect]
     Active Substance: SOMATROPIN
     Indication: ARTHROPATHY
     Dates: start: 20090520, end: 20120913
  2. FISH OIL [Concomitant]
     Active Substance: FISH OIL
  3. COQ10 [Concomitant]
     Active Substance: UBIDECARENONE
  4. RESVERATROL [Concomitant]
     Active Substance: DIETARY SUPPLEMENT\RESVERATROL
  5. COLLAGEN [Concomitant]
     Active Substance: COLLAGEN

REACTIONS (6)
  - Musculoskeletal stiffness [None]
  - Mobility decreased [None]
  - Posture abnormal [None]
  - Sensory disturbance [None]
  - Dysstasia [None]
  - Impaired work ability [None]

NARRATIVE: CASE EVENT DATE: 20120726
